FAERS Safety Report 6394835-6 (Version None)
Quarter: 2009Q4

REPORT INFORMATION
  Report Type: 
  Country: None (occurrence: None)
  Receive Date: 20091009
  Receipt Date: 20090929
  Transmission Date: 20100525
  Serious: Yes (Other)
  Sender: FDA-Public Use
  Company Number: US-MYLANLABS-2009S1017158

PATIENT
  Sex: Female

DRUGS (3)
  1. LAMOTRIGINE [Suspect]
     Indication: DEPRESSION
     Route: 048
     Dates: start: 20090811, end: 20090823
  2. LAMOTRIGINE [Suspect]
     Route: 048
     Dates: start: 20090824, end: 20090901
  3. CELEXA [Concomitant]
     Indication: DEPRESSION

REACTIONS (12)
  - ANGIOEDEMA [None]
  - COUGH [None]
  - DEHYDRATION [None]
  - DIZZINESS [None]
  - FATIGUE [None]
  - NAUSEA [None]
  - ORAL DISORDER [None]
  - OROPHARYNGEAL PAIN [None]
  - PYREXIA [None]
  - SOMNOLENCE [None]
  - VULVOVAGINAL PRURITUS [None]
  - WEIGHT DECREASED [None]
